FAERS Safety Report 13990794 (Version 1)
Quarter: 2017Q3

REPORT INFORMATION
  Report Type: Spontaneous
  Country: US (occurrence: US)
  Receive Date: 20170920
  Receipt Date: 20170920
  Transmission Date: 20171128
  Serious: No
  Sender: FDA-Public Use
  Company Number: US-PFIZER INC-2017404854

PATIENT
  Age: 42 Year
  Sex: Female

DRUGS (1)
  1. IBRANCE [Suspect]
     Active Substance: PALBOCICLIB
     Dosage: 125 MG, CYCLIC (1 DAILY 1-21 D THEN OFF 7 D)
     Route: 048

REACTIONS (3)
  - Gingival bleeding [Recovering/Resolving]
  - Drug hypersensitivity [Recovering/Resolving]
  - Epistaxis [Recovering/Resolving]
